FAERS Safety Report 17370253 (Version 1)
Quarter: 2020Q1

REPORT INFORMATION
  Report Type: Spontaneous
  Country: US (occurrence: US)
  Receive Date: 20200205
  Receipt Date: 20200205
  Transmission Date: 20200409
  Serious: No
  Sender: FDA-Public Use
  Company Number: US-TEVA-2020-US-1179087

PATIENT
  Age: 27 Year
  Sex: Male

DRUGS (2)
  1. NYSTATIN. [Suspect]
     Active Substance: NYSTATIN
     Indication: ASPERGILLUS INFECTION
     Route: 048
     Dates: start: 201911
  2. NYSTATIN. [Suspect]
     Active Substance: NYSTATIN
     Indication: INFECTION

REACTIONS (3)
  - Pruritus [Unknown]
  - Urticaria [Unknown]
  - Off label use [Unknown]

NARRATIVE: CASE EVENT DATE: 20200106
